FAERS Safety Report 20052154 (Version 1)
Quarter: 2021Q4

REPORT INFORMATION
  Report Type: Spontaneous
  Country: TW (occurrence: TW)
  Receive Date: 20211110
  Receipt Date: 20211110
  Transmission Date: 20220303
  Serious: Yes (Other)
  Sender: FDA-Public Use
  Company Number: TW-NOVARTISPH-NVSC2021TW255017

PATIENT
  Age: 7 Year
  Sex: Male

DRUGS (4)
  1. ELTROMBOPAG [Suspect]
     Active Substance: ELTROMBOPAG
     Indication: Aplastic anaemia
     Dosage: 25 MG, QD (FOR 4.3 MONTHS)
     Route: 065
  2. LAPINE T-LYMPHOCYTE IMMUNE GLOBULIN [Concomitant]
     Active Substance: LAPINE T-LYMPHOCYTE IMMUNE GLOBULIN
     Indication: Aplastic anaemia
     Dosage: UNK
     Route: 065
  3. CYCLOSPORINE [Concomitant]
     Active Substance: CYCLOSPORINE
     Indication: Aplastic anaemia
     Dosage: UNK
     Route: 065
  4. METHYLPREDNISOLONE [Concomitant]
     Active Substance: METHYLPREDNISOLONE
     Indication: Aplastic anaemia
     Dosage: UNK
     Route: 065

REACTIONS (2)
  - Hyperbilirubinaemia [Unknown]
  - Therapy partial responder [Unknown]
